FAERS Safety Report 13198689 (Version 1)
Quarter: 2017Q1

REPORT INFORMATION
  Report Type: Spontaneous
  Country: BR (occurrence: BR)
  Receive Date: 20170208
  Receipt Date: 20170208
  Transmission Date: 20170428
  Serious: Yes (Other)
  Sender: FDA-Public Use
  Company Number: BR-DSJP-DSU-2017-103929

PATIENT

DRUGS (6)
  1. OLMETEC [Suspect]
     Active Substance: OLMESARTAN MEDOXOMIL
     Indication: HYPERTENSION
     Dosage: 40 MG, QD
     Route: 048
     Dates: start: 2014
  2. GRAMIDE 6 [Concomitant]
     Indication: LABYRINTHITIS
     Dosage: 1 TABLET, QD (IN THE MORNING)
     Route: 048
     Dates: start: 2014
  3. DRAMIN B6 [Concomitant]
     Indication: LABYRINTHITIS
     Dosage: 1 TABLET, QD (IN THE MORNING)
     Route: 048
     Dates: start: 2014
  4. NORVASC [Suspect]
     Active Substance: AMLODIPINE BESYLATE
     Indication: HYPERTENSION
     Dosage: 5 MG, QD
     Dates: start: 2014
  5. LIPITOR [Suspect]
     Active Substance: ATORVASTATIN CALCIUM
     Indication: BLOOD CHOLESTEROL ABNORMAL
     Dosage: 1 TABLET, QD (AFTER DINNER)
     Route: 048
     Dates: start: 2014
  6. MELOSTIKAM [Concomitant]
     Indication: PAIN IN EXTREMITY
     Dosage: 1 TABLET, ONCE EVERY 12HR
     Route: 048

REACTIONS (10)
  - Tendon rupture [Unknown]
  - Peripheral swelling [Unknown]
  - Treatment noncompliance [Unknown]
  - Osteoporosis [Unknown]
  - Blood cholesterol increased [Unknown]
  - Chondropathy [Unknown]
  - Cyst [Unknown]
  - Gait disturbance [Unknown]
  - Pain in extremity [Unknown]
  - Hypotension [Unknown]
